FAERS Safety Report 6605120-9 (Version None)
Quarter: 2010Q1

REPORT INFORMATION
  Report Type: 
  Country: None (occurrence: None)
  Receive Date: 20100226
  Receipt Date: 20100216
  Transmission Date: 20100710
  Serious: Yes (Other)
  Sender: FDA-Public Use
  Company Number: SEWYE302913SEP07

PATIENT
  Sex: Female

DRUGS (3)
  1. TYGACIL [Suspect]
     Indication: MYCOBACTERIUM ABSCESSUS INFECTION
     Route: 042
     Dates: start: 20070201, end: 20071221
  2. AMIKACIN SULFATE [Concomitant]
  3. KLACID [Suspect]
     Indication: MYCOBACTERIUM ABSCESSUS INFECTION

REACTIONS (11)
  - BLOOD ALKALINE PHOSPHATASE INCREASED [None]
  - DECREASED APPETITE [None]
  - GENERALISED OEDEMA [None]
  - HAEMOGLOBIN DECREASED [None]
  - HYPOALBUMINAEMIA [None]
  - NAUSEA [None]
  - OFF LABEL USE [None]
  - RED BLOOD CELL COUNT DECREASED [None]
  - THERAPEUTIC RESPONSE UNEXPECTED [None]
  - VOMITING [None]
  - WEIGHT GAIN POOR [None]
